FAERS Safety Report 11759821 (Version 2)
Quarter: 2015Q4

REPORT INFORMATION
  Report Type: Spontaneous
  Country: IT (occurrence: IT)
  Receive Date: 20151120
  Receipt Date: 20151207
  Transmission Date: 20160304
  Serious: Yes (Other)
  Sender: FDA-Public Use
  Company Number: IT-PFIZER INC-2015392984

PATIENT
  Age: 20 Year
  Sex: Male
  Weight: 51 kg

DRUGS (1)
  1. SALAZOPYRIN EN [Suspect]
     Active Substance: SULFASALAZINE
     Indication: PSORIASIS
     Dosage: 300 MG, DAILY
     Route: 048
     Dates: start: 20150701, end: 20150721

REACTIONS (6)
  - Lip erosion [Unknown]
  - Mucosal inflammation [Unknown]
  - Product use issue [Recovered/Resolved]
  - Oral mucosa erosion [Unknown]
  - Odynophagia [Unknown]
  - Dysgeusia [Unknown]

NARRATIVE: CASE EVENT DATE: 20150701
